FAERS Safety Report 5948974-1 (Version None)
Quarter: 2008Q4

REPORT INFORMATION
  Report Type: 
  Country: None (occurrence: None)
  Receive Date: 20081111
  Receipt Date: 20081030
  Transmission Date: 20090506
  Serious: Yes (Hospitalization, Other)
  Sender: FDA-Public Use
  Company Number: US-PFIZER INC-2007060996

PATIENT
  Sex: Female

DRUGS (5)
  1. LYRICA [Suspect]
     Indication: FIBROMYALGIA
     Route: 048
     Dates: start: 20070701, end: 20080714
  2. CELEBREX [Concomitant]
  3. LASIX [Concomitant]
  4. MAXALT [Concomitant]
  5. CARISOPRODOL [Concomitant]

REACTIONS (3)
  - CONVULSION [None]
  - MOTOR DYSFUNCTION [None]
  - PAIN [None]
